FAERS Safety Report 16641849 (Version 3)
Quarter: 2019Q3

REPORT INFORMATION
  Report Type: Spontaneous
  Country: JP (occurrence: JP)
  Receive Date: 20190729
  Receipt Date: 20190813
  Transmission Date: 20191004
  Serious: Yes (Death, Other)
  Sender: FDA-Public Use
  Company Number: JP-ROCHE-2362086

PATIENT
  Age: 5 Decade
  Sex: Female

DRUGS (3)
  1. AVASTIN [Suspect]
     Active Substance: BEVACIZUMAB
     Indication: INFLAMMATORY CARCINOMA OF THE BREAST
     Route: 041
  2. PACLITAXEL. [Suspect]
     Active Substance: PACLITAXEL
     Indication: INFLAMMATORY CARCINOMA OF THE BREAST
     Dosage: DOSAGE IS UNCERTAIN.
     Route: 041
  3. VINORELBINE DITARTRATE [Concomitant]
     Active Substance: VINORELBINE TARTRATE

REACTIONS (2)
  - Skin ulcer [Not Recovered/Not Resolved]
  - Breast cancer [Fatal]
